FAERS Safety Report 6174749-7 (Version None)
Quarter: 2009Q2

REPORT INFORMATION
  Report Type: 
  Country: None (occurrence: None)
  Receive Date: 20090430
  Receipt Date: 20080910
  Transmission Date: 20091009
  Serious: No
  Sender: FDA-Public Use
  Company Number: US-ASTRAZENECA-2008UW18855

PATIENT
  Age: 85 Year
  Sex: Female

DRUGS (7)
  1. NEXIUM [Suspect]
     Indication: GASTROOESOPHAGEAL REFLUX DISEASE
     Route: 048
  2. LEVOXYL [Concomitant]
  3. ARTHROTEC [Concomitant]
  4. FELODAPINE [Concomitant]
  5. CLONIDINE [Concomitant]
  6. ZOCOR [Concomitant]
  7. ASPIRIN [Concomitant]

REACTIONS (2)
  - OROPHARYNGEAL PAIN [None]
  - SOMNOLENCE [None]
